FAERS Safety Report 26190593 (Version 1)
Quarter: 2025Q4

REPORT INFORMATION
  Report Type: Report from Study
  Country: US (occurrence: US)
  Receive Date: 20251223
  Receipt Date: 20251223
  Transmission Date: 20260117
  Serious: Yes (Other)
  Sender: AVERITAS
  Company Number: US-GRUNENTHAL-2025-126458

PATIENT
  Sex: Female

DRUGS (1)
  1. QUTENZA [Suspect]
     Active Substance: CAPSAICIN
     Indication: Diabetic neuropathy
     Dosage: UNK UNK, ONCE
     Route: 061
     Dates: start: 20251117, end: 20251117

REACTIONS (1)
  - Brain operation [Recovering/Resolving]

NARRATIVE: CASE EVENT DATE: 20250101
